FAERS Safety Report 7124302-3 (Version None)
Quarter: 2010Q4

REPORT INFORMATION
  Report Type: 
  Country: None (occurrence: None)
  Receive Date: 20101126
  Receipt Date: 20101116
  Transmission Date: 20110411
  Serious: Yes (Disabling)
  Sender: FDA-Public Use
  Company Number: PHHY2010US25992

PATIENT
  Sex: Female
  Weight: 56.8 kg

DRUGS (11)
  1. EXJADE [Suspect]
     Indication: OVARIAN CANCER
     Dosage: 1125 MG
     Route: 048
  2. EXJADE [Suspect]
     Indication: IRON OVERLOAD
     Dosage: 500MG DAILY
     Route: 048
     Dates: start: 20100317, end: 20100701
  3. LORAZEPAM [Concomitant]
  4. HYDROCODONE [Concomitant]
  5. MIRTAZAPINE [Concomitant]
  6. OMEPRAZOLE [Concomitant]
  7. DILTIAZEM [Concomitant]
  8. COMPAZINE [Concomitant]
  9. VITAMIN B6 [Concomitant]
  10. LOMOTIL [Concomitant]
  11. IMODIUM [Concomitant]

REACTIONS (3)
  - CONSTIPATION [None]
  - DIARRHOEA [None]
  - DRUG DOSE OMISSION [None]
